FAERS Safety Report 7805480-7 (Version None)
Quarter: 2011Q4

REPORT INFORMATION
  Report Type: 
  Country: None (occurrence: None)
  Receive Date: 20111010
  Receipt Date: 20110930
  Transmission Date: 20120403
  Serious: Yes (Other)
  Sender: FDA-Public Use
  Company Number: PHHY2011FR83987

PATIENT
  Sex: Female

DRUGS (3)
  1. AFINITOR [Suspect]
     Dosage: 5 MG, DAILY
     Dates: start: 20110801, end: 20110901
  2. AFINITOR [Suspect]
     Dosage: 10 MG, DAILY
     Dates: start: 20110701, end: 20110715
  3. SANDOSTATIN LAR [Suspect]
     Dosage: 30 MG, UNK
     Route: 065
     Dates: start: 20110501

REACTIONS (5)
  - HYPERCREATINAEMIA [None]
  - THROMBOCYTOPENIA [None]
  - SKIN HAEMORRHAGE [None]
  - FATIGUE [None]
  - PURPURA [None]
